FAERS Safety Report 5710586-2 (Version None)
Quarter: 2008Q2

REPORT INFORMATION
  Report Type: 
  Country: None (occurrence: None)
  Receive Date: 20080415
  Receipt Date: 20080404
  Transmission Date: 20081010
  Serious: Yes (Hospitalization)
  Sender: FDA-Public Use
  Company Number: 2008BI009292

PATIENT
  Age: 52 Year
  Sex: Female

DRUGS (1)
  1. TYSABRI [Suspect]
     Indication: MULTIPLE SCLEROSIS
     Dosage: 300 MG QM IV
     Route: 042
     Dates: start: 20080130

REACTIONS (6)
  - BLOOD COUNT ABNORMAL [None]
  - DIARRHOEA [None]
  - FUNGAL INFECTION [None]
  - INFREQUENT BOWEL MOVEMENTS [None]
  - URINARY TRACT INFECTION [None]
  - VISUAL ACUITY REDUCED [None]
